FAERS Safety Report 21694633 (Version 2)
Quarter: 2023Q4

REPORT INFORMATION
  Report Type: Spontaneous
  Country: IN (occurrence: IN)
  Receive Date: 20221207
  Receipt Date: 20231205
  Transmission Date: 20240110
  Serious: Yes (Other)
  Sender: FDA-Public Use
  Company Number: IN-PFIZER INC-PV202200118174

PATIENT
  Age: 59 Year
  Sex: Male

DRUGS (1)
  1. INLYTA [Suspect]
     Active Substance: AXITINIB
     Indication: Renal cell carcinoma
     Dosage: 5 MG
     Route: 048
     Dates: start: 202202

REACTIONS (4)
  - Intervertebral disc degeneration [Unknown]
  - Back pain [Unknown]
  - Nodule [Unknown]
  - Neoplasm progression [Unknown]
